FAERS Safety Report 11847483 (Version 1)
Quarter: 2015Q4

REPORT INFORMATION
  Report Type: Spontaneous
  Country: US (occurrence: US)
  Receive Date: 20151217
  Receipt Date: 20151217
  Transmission Date: 20160305
  Serious: No
  Sender: FDA-Public Use
  Company Number: US-ASTRAZENECA-2015SF24063

PATIENT
  Age: 73 Year
  Sex: Female

DRUGS (2)
  1. SEROQUEL XR [Suspect]
     Active Substance: QUETIAPINE FUMARATE
     Indication: DEPRESSION
     Route: 048
  2. SEROQUEL XR [Suspect]
     Active Substance: QUETIAPINE FUMARATE
     Indication: INSOMNIA
     Route: 048

REACTIONS (9)
  - Dyskinesia [Unknown]
  - Dry mouth [Unknown]
  - Product use issue [Unknown]
  - Sleep disorder due to a general medical condition [Unknown]
  - Adverse event [Unknown]
  - Hallucination, visual [Unknown]
  - Tremor [Unknown]
  - Burning sensation [Unknown]
  - Dyspnoea [Unknown]
